FAERS Safety Report 7192818-X (Version None)
Quarter: 2010Q4

REPORT INFORMATION
  Report Type: 
  Country: None (occurrence: None)
  Receive Date: 20101221
  Receipt Date: 20101221
  Transmission Date: 20110411
  Serious: Yes (Disabling)
  Sender: FDA-Public Use
  Company Number: None

PATIENT
  Age: 25 Year
  Sex: Male
  Weight: 65.7716 kg

DRUGS (4)
  1. ACTIQ [Suspect]
     Indication: PAIN
     Dosage: 800MCG-1600MCG 1-4 TIMES/DAY BUCCAL
     Route: 002
     Dates: start: 20030101, end: 20050101
  2. OXYCONTIN [Concomitant]
  3. DURAGESIC-50 [Concomitant]
  4. DILAUDID [Concomitant]

REACTIONS (4)
  - PRODUCT FORMULATION ISSUE [None]
  - PRODUCT FRIABLE [None]
  - PRODUCT TASTE ABNORMAL [None]
  - TOOTH LOSS [None]
